FAERS Safety Report 4479577-6 (Version None)
Quarter: 2004Q4

REPORT INFORMATION
  Report Type: 
  Country: None (occurrence: None)
  Receive Date: 20041015
  Receipt Date: 20040929
  Transmission Date: 20050328
  Serious: Yes (Hospitalization, Disabling)
  Sender: FDA-Public Use
  Company Number: 200304633

PATIENT
  Age: 45 Year
  Sex: Female
  Weight: 59 kg

DRUGS (3)
  1. PRED FORTE [Suspect]
     Indication: IRITIS
     Dates: start: 20020731, end: 20021111
  2. DIURAMID [Concomitant]
  3. DEXAPOS [Concomitant]

REACTIONS (7)
  - BLINDNESS UNILATERAL [None]
  - DISEASE RECURRENCE [None]
  - FALL [None]
  - IRITIS [None]
  - MYDRIASIS [None]
  - OPEN ANGLE GLAUCOMA [None]
  - OPTIC ATROPHY [None]
